FAERS Safety Report 23043195 (Version 6)
Quarter: 2024Q2

REPORT INFORMATION
  Report Type: Report from Study
  Country: US (occurrence: US)
  Receive Date: 20231009
  Receipt Date: 20240604
  Transmission Date: 20240715
  Serious: Yes (Life-Threatening, Other)
  Sender: FDA-Public Use
  Company Number: US-002147023-NVSC2023US216816

PATIENT
  Sex: Female

DRUGS (1)
  1. KESIMPTA [Suspect]
     Active Substance: OFATUMUMAB
     Indication: Multiple sclerosis
     Dosage: UNK
     Route: 065

REACTIONS (10)
  - Kidney infection [Recovered/Resolved]
  - Pyrexia [Unknown]
  - Urosepsis [Unknown]
  - Hypotension [Unknown]
  - Vomiting [Unknown]
  - Tachycardia [Unknown]
  - Feeling abnormal [Unknown]
  - Flushing [Unknown]
  - Pain [Unknown]
  - Fatigue [Unknown]
